FAERS Safety Report 12896415 (Version 1)
Quarter: 2016Q4

REPORT INFORMATION
  Report Type: Spontaneous
  Country: US (occurrence: US)
  Receive Date: 20161031
  Receipt Date: 20161031
  Transmission Date: 20170207
  Serious: No
  Sender: FDA-Public Use
  Company Number: US-JAZZ-2016-US-016424

PATIENT
  Sex: Female

DRUGS (29)
  1. CALCIUM CITRATE [Concomitant]
     Active Substance: CALCIUM CITRATE
  2. LACTOFERRIN [Concomitant]
     Active Substance: LACTOFERRIN
  3. OMEGA 3 FISH OIL [Concomitant]
     Active Substance: FISH OIL\OMEGA-3 FATTY ACIDS
  4. CHAMOMILE [Concomitant]
     Active Substance: CHAMOMILE
  5. DULERA [Concomitant]
     Active Substance: FORMOTEROL FUMARATE DIHYDRATE\MOMETASONE FUROATE
  6. XYREM [Suspect]
     Active Substance: SODIUM OXYBATE
     Indication: NARCOLEPSY
     Dosage: 2.25 G, BID
     Route: 048
     Dates: start: 201007, end: 201008
  7. ADDERALL [Concomitant]
     Active Substance: AMPHETAMINE ASPARTATE\AMPHETAMINE SULFATE\DEXTROAMPHETAMINE SACCHARATE\DEXTROAMPHETAMINE SULFATE
  8. ERYTHROMYCIN/BENZOYL PEROXIDE [Concomitant]
  9. XYREM [Suspect]
     Active Substance: SODIUM OXYBATE
     Dosage: 3.25 G, BID
     Route: 048
     Dates: start: 201606
  10. MAGNESIUM OXIDE. [Concomitant]
     Active Substance: MAGNESIUM OXIDE
  11. BENZOYL PEROXIDE. [Concomitant]
     Active Substance: BENZOYL PEROXIDE
  12. MEFENAMIC ACID. [Concomitant]
     Active Substance: MEFENAMIC ACID
  13. MISOPROSTOL. [Concomitant]
     Active Substance: MISOPROSTOL
  14. PROPANOLOL [Concomitant]
     Active Substance: PROPRANOLOL HYDROCHLORIDE
  15. ULTRA FLORA [Concomitant]
  16. XYREM [Suspect]
     Active Substance: SODIUM OXYBATE
     Indication: CATAPLEXY
     Dosage: DOSE ADJUSTMENTS
     Route: 048
     Dates: start: 201008, end: 201606
  17. PONSTEL [Concomitant]
     Active Substance: MEFENAMIC ACID
  18. MVI [Concomitant]
     Active Substance: VITAMINS
  19. PROMETRIUM [Concomitant]
     Active Substance: PROGESTERONE
  20. CLONAZEPAM. [Concomitant]
     Active Substance: CLONAZEPAM
  21. WELLBUTRIN [Concomitant]
     Active Substance: BUPROPION HYDROCHLORIDE
  22. IRON [Concomitant]
     Active Substance: IRON
  23. VITAMIN C [Concomitant]
     Active Substance: ASCORBIC ACID
  24. KLOR-CON [Concomitant]
     Active Substance: POTASSIUM CHLORIDE
  25. SINUS SUPPORT [Concomitant]
  26. PROBIOTIC [Concomitant]
     Active Substance: PROBIOTICS NOS
  27. NUVIGIL [Concomitant]
     Active Substance: ARMODAFINIL
  28. MINOCYCLINE HCL [Concomitant]
     Active Substance: MINOCYCLINE HYDROCHLORIDE
  29. CATNIP [Concomitant]

REACTIONS (1)
  - Food allergy [Not Recovered/Not Resolved]
